FAERS Safety Report 7584104-0 (Version None)
Quarter: 2011Q2

REPORT INFORMATION
  Report Type: 
  Country: None (occurrence: None)
  Receive Date: 20110630
  Receipt Date: 20110623
  Transmission Date: 20111010
  Serious: Yes (Death)
  Sender: FDA-Public Use
  Company Number: US-JNJFOC-20110611188

PATIENT
  Sex: Female

DRUGS (7)
  1. STELARA [Suspect]
     Indication: PSORIASIS
     Route: 058
     Dates: start: 20101217
  2. STELARA [Suspect]
     Route: 058
     Dates: start: 20110318
  3. TOPROL-XL [Concomitant]
     Indication: HYPERTENSION
  4. ASPIRIN [Concomitant]
  5. STELARA [Suspect]
     Route: 058
     Dates: start: 20101101
  6. NORVASC [Concomitant]
     Indication: HYPERTENSION
  7. SULFASALAZINE [Concomitant]

REACTIONS (1)
  - MYOCARDIAL INFARCTION [None]
